FAERS Safety Report 9663730 (Version 1)
Quarter: 2013Q4

REPORT INFORMATION
  Report Type: Spontaneous
  Country: FR (occurrence: FR)
  Receive Date: 20131101
  Receipt Date: 20131101
  Transmission Date: 20140711
  Serious: Yes (Hospitalization)
  Sender: FDA-Public Use
  Company Number: PHHY2013FR123523

PATIENT
  Age: 70 Year
  Sex: Female

DRUGS (3)
  1. VOLTARENE [Suspect]
     Dosage: UNK UKN, UNK
     Route: 048
     Dates: end: 20121212
  2. COLCHIMAX /FRA/ [Suspect]
     Dosage: UNK UKN, UNK
     Route: 048
     Dates: start: 201209, end: 20121212
  3. DAFALGAN [Suspect]
     Dosage: 500 MG, TID
     Route: 048
     Dates: end: 20121212

REACTIONS (2)
  - Cholestasis [Recovered/Resolved]
  - Hepatocellular injury [Recovered/Resolved]
